FAERS Safety Report 11336901 (Version 2)
Quarter: 2015Q3

REPORT INFORMATION
  Report Type: Spontaneous
  Country: US (occurrence: US)
  Receive Date: 20150804
  Receipt Date: 20150914
  Transmission Date: 20151125
  Serious: No
  Sender: FDA-Public Use
  Company Number: US-PFIZER INC-2015260131

PATIENT
  Age: 41 Year
  Sex: Female
  Weight: 132 kg

DRUGS (1)
  1. XELJANZ [Suspect]
     Active Substance: TOFACITINIB CITRATE
     Indication: RHEUMATOID ARTHRITIS
     Dosage: 5 MG, 2X/DAY
     Route: 048
     Dates: start: 201501

REACTIONS (6)
  - Nausea [Not Recovered/Not Resolved]
  - Asthenia [Unknown]
  - Abdominal distension [Not Recovered/Not Resolved]
  - Abdominal pain lower [Not Recovered/Not Resolved]
  - Abdominal discomfort [Unknown]
  - Eating disorder [Not Recovered/Not Resolved]
